FAERS Safety Report 18251206 (Version 1)
Quarter: 2020Q3

REPORT INFORMATION
  Report Type: Spontaneous
  Country: IT (occurrence: IT)
  Receive Date: 20200910
  Receipt Date: 20200910
  Transmission Date: 20201103
  Serious: Yes (Hospitalization)
  Sender: FDA-Public Use
  Company Number: IT-TEVA-2020-IT-1824493

PATIENT
  Age: 87 Year
  Sex: Female
  Weight: 59 kg

DRUGS (2)
  1. CLOPIDOGREL [Suspect]
     Active Substance: CLOPIDOGREL BISULFATE
     Indication: REVASCULARISATION PROCEDURE
     Dosage: 75 MILLIGRAM
     Route: 048
     Dates: start: 20200430, end: 20200608
  2. LIXIANA 30 MG FILM?COATED TABLETS [Concomitant]
     Active Substance: EDOXABAN TOSYLATE
     Indication: ATRIAL FIBRILLATION
     Dosage: 30 MILLIGRAM
     Dates: start: 20191002

REACTIONS (1)
  - Melaena [Recovered/Resolved]

NARRATIVE: CASE EVENT DATE: 20200608
